FAERS Safety Report 8384244 (Version 2)
Quarter: 2013Q1

REPORT INFORMATION
  Report Type: Spontaneous
  Country: US (occurrence: US)
  Receive Date: 20120202
  Receipt Date: 20130103
  Transmission Date: 20140127
  Serious: Yes (Hospitalization, Other)
  Sender: FDA-Public Use
  Company Number: US-PFIZER INC-2012024764

PATIENT
  Age: 39 Year
  Sex: Female

DRUGS (7)
  1. DILANTIN [Suspect]
     Indication: CONVULSION
     Dosage: 300 MG, 1X/DAY, (AT BED TIME)
     Route: 048
     Dates: start: 20100716
  2. DICYCLOMINE [Concomitant]
     Dosage: 10 MG, 4X/DAY
     Route: 048
     Dates: start: 20100811
  3. METHYLPREDNISOLONE [Concomitant]
     Dosage: UNK
     Dates: start: 20100811
  4. LUNESTA [Concomitant]
     Dosage: 3 MG, 1X/DAY, (AT BED TIME)
     Route: 048
     Dates: start: 20100812
  5. MIRTAZAPINE [Concomitant]
     Dosage: 30 MG, 1X/DAY, (AT BED TIME)
     Route: 048
     Dates: start: 20100813
  6. GEODON [Concomitant]
     Dosage: 40 MG, 1X/DAY, (AT BED TIME)
     Route: 048
     Dates: start: 20100814
  7. RANITIDINE [Concomitant]
     Dosage: 150 MG, 2X/DAY
     Route: 048
     Dates: start: 20100816

REACTIONS (1)
  - Stevens-Johnson syndrome [Unknown]
